FAERS Safety Report 6069065-8 (Version None)
Quarter: 2009Q1

REPORT INFORMATION
  Report Type: 
  Country: None (occurrence: None)
  Receive Date: 20090121
  Receipt Date: 20080222
  Transmission Date: 20090719
  Serious: Yes (Other)
  Sender: FDA-Public Use
  Company Number: HQWYE411623JUL04

PATIENT
  Age: 48 Year
  Sex: Female
  Weight: 81.72 kg

DRUGS (7)
  1. PREMPRO [Suspect]
     Indication: MENOPAUSAL SYMPTOMS
     Dosage: 0.625MG/2.5MG DAILY, ORAL
     Route: 048
     Dates: start: 19970701, end: 19991201
  2. ESTROGENS SOL/INJ [Suspect]
  3. MEDROXYPROGESTERONE [Suspect]
  4. PREMARIN [Suspect]
  5. PROVERA [Suspect]
  6. NORVASC [Concomitant]
  7. HYZAAR [Concomitant]

REACTIONS (2)
  - BREAST CANCER [None]
  - WEIGHT INCREASED [None]
